FAERS Safety Report 8345525-1 (Version None)
Quarter: 2012Q2

REPORT INFORMATION
  Report Type: 
  Country: None (occurrence: None)
  Receive Date: 20120508
  Receipt Date: 20120501
  Transmission Date: 20120825
  Serious: Yes (Other)
  Sender: FDA-Public Use
  Company Number: US-BAYER-2012-042979

PATIENT

DRUGS (3)
  1. NAPROXEN SODIUM [Suspect]
     Indication: PRODUCT USED FOR UNKNOWN INDICATION
     Route: 048
  2. CALCIUM CARBONATE [Concomitant]
  3. IBUPROFEN (ADVIL) [Concomitant]

REACTIONS (2)
  - UNEVALUABLE EVENT [None]
  - CHEST DISCOMFORT [None]
